FAERS Safety Report 15107579 (Version 3)
Quarter: 2018Q3

REPORT INFORMATION
  Report Type: Report from Study
  Country: IT (occurrence: IT)
  Receive Date: 20180704
  Receipt Date: 20180815
  Transmission Date: 20181010
  Serious: Yes (Hospitalization)
  Sender: FDA-Public Use
  Company Number: IT-TEVA-2018-IT-918321

PATIENT
  Age: 58 Year
  Sex: Male

DRUGS (9)
  1. AMIODARONE [Suspect]
     Active Substance: AMIODARONE
     Route: 048
     Dates: start: 20180118, end: 20180118
  2. OLMESARTAN MEDOXOMIL/IDROCLOROTIAZIDE [Suspect]
     Active Substance: HYDROCHLOROTHIAZIDE\OLMESARTAN MEDOXOMIL
     Route: 048
     Dates: start: 20180118, end: 20180118
  3. AMLODIPINE [Suspect]
     Active Substance: AMLODIPINE BESYLATE
     Route: 065
     Dates: start: 20180118, end: 20180118
  4. ELIQUIS [Suspect]
     Active Substance: APIXABAN
     Route: 048
     Dates: start: 20180118, end: 20180118
  5. TRIAZOLAM. [Suspect]
     Active Substance: TRIAZOLAM
     Route: 048
     Dates: start: 20180118, end: 20180118
  6. PALEXIA [Suspect]
     Active Substance: TAPENTADOL HYDROCHLORIDE
     Route: 048
     Dates: start: 20180118, end: 20180118
  7. TAMSULOSIN HYDROCHLORIDE. [Concomitant]
     Active Substance: TAMSULOSIN HYDROCHLORIDE
     Indication: BENIGN PROSTATIC HYPERPLASIA
     Route: 048
  8. BISOPROLOL HEMIFUMARATE [Suspect]
     Active Substance: BISOPROLOL FUMARATE
     Route: 065
     Dates: start: 20180118, end: 20180118
  9. ATORVASTATIN CALCIUM. [Suspect]
     Active Substance: ATORVASTATIN CALCIUM
     Route: 048
     Dates: start: 20180118, end: 20180118

REACTIONS (3)
  - Drug abuse [Recovering/Resolving]
  - Urinary incontinence [Recovering/Resolving]
  - Confusional state [Recovering/Resolving]

NARRATIVE: CASE EVENT DATE: 20180118
